FAERS Safety Report 7595675-2 (Version None)
Quarter: 2011Q3

REPORT INFORMATION
  Report Type: 
  Country: None (occurrence: None)
  Receive Date: 20110707
  Receipt Date: 20110705
  Transmission Date: 20111222
  Serious: Yes (Hospitalization)
  Sender: FDA-Public Use
  Company Number: DE-MERCK-1107DEU00018

PATIENT
  Age: 59 Year
  Sex: Male
  Weight: 98 kg

DRUGS (3)
  1. PHENPROCOUMON [Concomitant]
     Indication: DEEP VEIN THROMBOSIS
     Route: 048
     Dates: start: 20090101, end: 20110105
  2. ZOCOR [Suspect]
     Indication: HYPERCHOLESTEROLAEMIA
     Route: 048
     Dates: start: 20101222, end: 20110105
  3. ATENOLOL [Concomitant]
     Indication: HYPERTENSION
     Route: 048
     Dates: end: 20110105

REACTIONS (2)
  - JAUNDICE [None]
  - LIVER INJURY [None]
